FAERS Safety Report 9638177 (Version 1)
Quarter: 2013Q4

REPORT INFORMATION
  Report Type: Spontaneous
  Country: US (occurrence: None)
  Receive Date: 20131021
  Receipt Date: 20131021
  Transmission Date: 20140711
  Serious: Yes (Other)
  Sender: FDA-Public Use
  Company Number: None

PATIENT
  Age: 69 Year
  Sex: Female

DRUGS (1)
  1. NEXAVAR [Suspect]
     Indication: NEOPLASM MALIGNANT
     Dosage: 2 TABLET, BID, PO
     Route: 048
     Dates: start: 20130912, end: 20131004

REACTIONS (3)
  - Rash pruritic [None]
  - Blister [None]
  - Glossodynia [None]
